FAERS Safety Report 9321577 (Version 2)
Quarter: 2013Q2

REPORT INFORMATION
  Report Type: Spontaneous
  Country: JP (occurrence: JP)
  Receive Date: 20130531
  Receipt Date: 20130605
  Transmission Date: 20140414
  Serious: No
  Sender: FDA-Public Use
  Company Number: JP-SANOFI-AVENTIS-2013SA053535

PATIENT
  Sex: Male

DRUGS (1)
  1. LASIX [Suspect]
     Indication: OEDEMA PERIPHERAL
     Route: 048

REACTIONS (1)
  - Hearing impaired [Recovering/Resolving]
